FAERS Safety Report 15107557 (Version 1)
Quarter: 2018Q3

REPORT INFORMATION
  Report Type: Spontaneous
  Country: JP (occurrence: JP)
  Receive Date: 20180704
  Receipt Date: 20180704
  Transmission Date: 20181010
  Serious: Yes (Other)
  Sender: FDA-Public Use
  Company Number: JP-PFIZER INC-2018269690

PATIENT
  Age: 66 Year
  Sex: Male

DRUGS (12)
  1. HYDROCORTISONE. [Suspect]
     Active Substance: HYDROCORTISONE
     Indication: HORMONE REPLACEMENT THERAPY
  2. CYCLOPHOSPHAMIDE. [Suspect]
     Active Substance: CYCLOPHOSPHAMIDE
     Dosage: UNK, CYCLIC (SALVAGE THERAPY WITH FIVE CYCLES OF CHASER THERAPY)
  3. DEXAMETHASONE. [Suspect]
     Active Substance: DEXAMETHASONE
     Indication: B-CELL LYMPHOMA
     Dosage: UNK, CYCLIC (SALVAGE THERAPY WITH FIVE CYCLES OF CHASER THERAPY)
  4. RITUXIMAB. [Suspect]
     Active Substance: RITUXIMAB
     Dosage: UNK, CYCLIC (SALVAGE THERAPY WITH FIVE CYCLES OF CHASER THERAPY)
  5. CYCLOPHOSPHAMIDE. [Suspect]
     Active Substance: CYCLOPHOSPHAMIDE
     Indication: B-CELL LYMPHOMA
     Dosage: UNK, CYCLIC (FIRST?LINE THERAPY OF SIX CYCLES OF R?CHOP)
  6. RITUXIMAB. [Suspect]
     Active Substance: RITUXIMAB
     Indication: B-CELL LYMPHOMA
     Dosage: UNK, CYCLIC (FIRST?LINE THERAPY OF SIX CYCLES OF R?CHOP)
  7. VINCRISTINE [Concomitant]
     Active Substance: VINCRISTINE
     Indication: B-CELL LYMPHOMA
     Dosage: UNK, CYCLIC (FIRST?LINE THERAPY OF SIX CYCLES OF R?CHOP)
  8. CYTARABINE. [Suspect]
     Active Substance: CYTARABINE
     Indication: B-CELL LYMPHOMA
     Dosage: UNK, CYCLIC (HIGH?DOSE, SALVAGE THERAPY WITH FIVE CYCLES OF CHASER THERAPY)
  9. HYDROCORTISONE. [Suspect]
     Active Substance: HYDROCORTISONE
     Indication: PRIMARY HYPOGONADISM
     Dosage: 15 MG, UNK
  10. ETOPOSIDE. [Suspect]
     Active Substance: ETOPOSIDE
     Indication: B-CELL LYMPHOMA
     Dosage: UNK, CYCLIC (SALVAGE THERAPY WITH FIVE CYCLES OF CHASER THERAPY)
  11. DOXORUBICIN [Concomitant]
     Active Substance: DOXORUBICIN
     Indication: B-CELL LYMPHOMA
     Dosage: UNK, CYCLIC (FIRST?LINE THERAPY OF SIX CYCLES OF R?CHOP)
  12. PREDNISOLONE. [Concomitant]
     Active Substance: PREDNISOLONE
     Indication: B-CELL LYMPHOMA
     Dosage: UNK, CYCLIC (FIRST?LINE THERAPY OF SIX CYCLES OF R?CHOP)

REACTIONS (3)
  - Cytomegalovirus infection [Unknown]
  - CD4/CD8 ratio decreased [Unknown]
  - Hypogammaglobulinaemia [Unknown]
